FAERS Safety Report 19694261 (Version 1)
Quarter: 2021Q3

REPORT INFORMATION
  Report Type: Spontaneous
  Country: US (occurrence: US)
  Receive Date: 20210813
  Receipt Date: 20210813
  Transmission Date: 20211014
  Serious: Yes (Hospitalization)
  Sender: FDA-Public Use
  Company Number: US-IPCA LABORATORIES LIMITED-IPC-2021-US-001498

PATIENT

DRUGS (8)
  1. LIDOCAINE. [Suspect]
     Active Substance: LIDOCAINE
     Indication: OCCIPITAL NEURALGIA
     Dosage: UNK
     Route: 061
  2. LORAZEPAM. [Suspect]
     Active Substance: LORAZEPAM
     Indication: OCCIPITAL NEURALGIA
     Dosage: UNK
     Route: 065
  3. CAPSAICIN. [Suspect]
     Active Substance: CAPSAICIN
     Indication: OCCIPITAL NEURALGIA
     Dosage: UNK
     Route: 061
  4. TRAMADOL. [Suspect]
     Active Substance: TRAMADOL
     Indication: OCCIPITAL NEURALGIA
     Dosage: UNK
     Route: 065
  5. PREGABALIN. [Suspect]
     Active Substance: PREGABALIN
     Indication: OCCIPITAL NEURALGIA
     Dosage: UNK
     Route: 065
  6. GABAPENTIN. [Suspect]
     Active Substance: GABAPENTIN
     Indication: OCCIPITAL NEURALGIA
     Dosage: UNK
     Route: 065
  7. WARFARIN [Suspect]
     Active Substance: WARFARIN
     Indication: PULMONARY EMBOLISM
     Dosage: UNK
     Route: 065
  8. PARACETAMOL [Suspect]
     Active Substance: ACETAMINOPHEN
     Indication: OCCIPITAL NEURALGIA
     Dosage: UNK
     Route: 065

REACTIONS (3)
  - Drug ineffective [Unknown]
  - Anticoagulation drug level above therapeutic [Unknown]
  - Haematoma [Unknown]
